FAERS Safety Report 5908931-8 (Version None)
Quarter: 2008Q4

REPORT INFORMATION
  Report Type: 
  Country: None (occurrence: None)
  Receive Date: 20081006
  Receipt Date: 20080925
  Transmission Date: 20090506
  Serious: Yes (Other)
  Sender: FDA-Public Use
  Company Number: JP-ASTRAZENECA-2008SE04572

PATIENT
  Age: 67 Year
  Sex: Male

DRUGS (3)
  1. BLOPRESS [Suspect]
     Route: 048
     Dates: start: 20060301, end: 20060401
  2. FUROSEMIDE [Suspect]
     Route: 048
     Dates: start: 20060301, end: 20060401
  3. (DILAZEP HYDROCHLORIDE) [Suspect]
     Route: 048
     Dates: start: 20060301, end: 20060401

REACTIONS (1)
  - GLOMERULONEPHRITIS RAPIDLY PROGRESSIVE [None]
